FAERS Safety Report 19445069 (Version 1)
Quarter: 2021Q2

REPORT INFORMATION
  Report Type: Spontaneous
  Country: ES (occurrence: ES)
  Receive Date: 20210622
  Receipt Date: 20210622
  Transmission Date: 20210717
  Serious: Yes (Other)
  Sender: FDA-Public Use
  Company Number: ES-CELLTRION INC.-2021ES008268

PATIENT

DRUGS (8)
  1. TACROLIMUS. [Concomitant]
     Active Substance: TACROLIMUS
     Indication: HODGKIN^S DISEASE
     Dosage: 0.06MG/KG/DAY IN 5 (26%) (3 PATIENTS STARTING 2 TO 4 WEEKS BEFORE INFUSION, AND 2 PATIENTS ON DAYS ?
  2. MYCOPHENOLATE MOFETIL. [Concomitant]
     Active Substance: MYCOPHENOLATE MOFETIL
     Indication: PROPHYLAXIS AGAINST GRAFT VERSUS HOST DISEASE
  3. CYCLOPHOSPHAMIDE. [Concomitant]
     Active Substance: CYCLOPHOSPHAMIDE
     Indication: PROPHYLAXIS AGAINST GRAFT VERSUS HOST DISEASE
     Dosage: HIGH DOSE POST TRANSPLANT 50 MG/KG/DAY ON DAYS +3 AND +4 TOGETHER WITH MOFETIL MYCOPHENOLATE
  4. RITUXIMAB (UNKNOWN) [Suspect]
     Active Substance: RITUXIMAB
     Indication: HODGKIN^S DISEASE
     Dosage: 375 MG/M2 (MEDIAN DOSES 3.5 DOSES, RANGE 1?6 (X 3 DOSES)
  5. RITUXIMAB (UNKNOWN) [Suspect]
     Active Substance: RITUXIMAB
     Indication: IMMUNE TOLERANCE INDUCTION
  6. MYCOPHENOLATE MOFETIL. [Concomitant]
     Active Substance: MYCOPHENOLATE MOFETIL
     Indication: HODGKIN^S DISEASE
     Dosage: MMF 5?10MG/KG/BID IN 12 (63%) (MEDIAN 21 DAYS, RANGE 14?28, STARTING 2 TO 4 WEEKS BEFORE THE INFUSIO
  7. IMMUNOGLOBULIN I.V [Concomitant]
     Active Substance: HUMAN IMMUNOGLOBULIN G
     Indication: HODGKIN^S DISEASE
     Dosage: 0.4MG/KG/DAY IN 13 (68%) (MEDIAN 5 DAYS, RANGE 3?10; 10 PATIENTS RECEIVED IVIG DURING CONDITIONING R
  8. TACROLIMUS. [Concomitant]
     Active Substance: TACROLIMUS
     Indication: PROPHYLAXIS AGAINST GRAFT VERSUS HOST DISEASE

REACTIONS (3)
  - Hodgkin^s disease recurrent [Unknown]
  - Drug effective for unapproved indication [Unknown]
  - Off label use [Unknown]
